FAERS Safety Report 5527709-0 (Version None)
Quarter: 2007Q4

REPORT INFORMATION
  Report Type: 
  Country: None (occurrence: None)
  Receive Date: 20071121
  Receipt Date: 20071109
  Transmission Date: 20080405
  Serious: Yes (Life-Threatening)
  Sender: FDA-Public Use
  Company Number: 2007P1000699

PATIENT
  Age: 4 Year
  Sex: Male

DRUGS (2)
  1. BUSULFAN (BUSULFAN) [Suspect]
     Indication: STEM CELL TRANSPLANT
     Dosage: 4.8 MG/KG;QD;IV
     Route: 042
     Dates: start: 20070804, end: 20070808
  2. DALTEPARIN SODIUM [Concomitant]

REACTIONS (2)
  - BONE MARROW TRANSPLANT REJECTION [None]
  - DRUG INEFFECTIVE [None]
